FAERS Safety Report 10437989 (Version 1)
Quarter: 2014Q3

REPORT INFORMATION
  Report Type: Spontaneous
  Country: US (occurrence: US)
  Receive Date: 20140908
  Receipt Date: 20140908
  Transmission Date: 20150326
  Serious: No
  Sender: FDA-Public Use
  Company Number: US-BRISTOL-MYERS SQUIBB COMPANY-19800614

PATIENT
  Age: 57 Year
  Sex: Male
  Weight: 113.38 kg

DRUGS (2)
  1. ABILIFY [Suspect]
     Active Substance: ARIPIPRAZOLE
     Indication: BIPOLAR DISORDER
     Dosage: INTIAL DOSE WAS 10MG, DOSE INCREASED TO 40 MG ON 17-OCT-2013
     Dates: start: 2013
  2. LITHIUM [Suspect]
     Active Substance: LITHIUM CARBONATE
     Indication: BIPOLAR DISORDER
     Dosage: DOSE WAS ALSO INCREASED TO 750MG,900MG

REACTIONS (1)
  - Affect lability [Unknown]
